FAERS Safety Report 7705333-9 (Version None)
Quarter: 2011Q3

REPORT INFORMATION
  Report Type: 
  Country: None (occurrence: None)
  Receive Date: 20110824
  Receipt Date: 20110813
  Transmission Date: 20111222
  Serious: Yes (Other)
  Sender: FDA-Public Use
  Company Number: US-JNJFOC-20110807190

PATIENT
  Sex: Male
  Weight: 89.81 kg

DRUGS (4)
  1. ZYTIGA [Suspect]
     Indication: PROSTATE CANCER STAGE IV
     Route: 048
     Dates: start: 20110803
  2. OXYCONTIN [Concomitant]
     Indication: PAIN
     Route: 048
     Dates: start: 20110101
  3. PREDNISONE TAB [Concomitant]
     Indication: PROSTATE CANCER
     Route: 048
     Dates: start: 20110803
  4. BICALUTAMIDE [Concomitant]
     Indication: PROSTATE CANCER
     Route: 048
     Dates: start: 20110811

REACTIONS (9)
  - FATIGUE [None]
  - MYALGIA [None]
  - BONE PAIN [None]
  - ASTHENIA [None]
  - PAIN [None]
  - HYPOKINESIA [None]
  - PAIN IN EXTREMITY [None]
  - MOBILITY DECREASED [None]
  - DRUG ADMINISTRATION ERROR [None]
